FAERS Safety Report 25230607 (Version 1)
Quarter: 2025Q2

REPORT INFORMATION
  Report Type: Spontaneous
  Country: US (occurrence: None)
  Receive Date: 20250422
  Receipt Date: 20250422
  Transmission Date: 20250717
  Serious: No
  Sender: FDA-CTU
  Company Number: None

PATIENT
  Age: 59 Year
  Sex: Male
  Weight: 87.75 kg

DRUGS (2)
  1. XIAFLEX [Suspect]
     Active Substance: COLLAGENASE CLOSTRIDIUM HISTOLYTICUM
     Indication: Product used for unknown indication
     Dates: start: 20241111, end: 20241113
  2. METOPROLOL [Concomitant]
     Active Substance: METOPROLOL

REACTIONS (7)
  - Penile swelling [None]
  - Testicular swelling [None]
  - Penile contusion [None]
  - Injection site reaction [None]
  - Painful erection [None]
  - Erectile dysfunction [None]
  - Penile pain [None]

NARRATIVE: CASE EVENT DATE: 20241111
